FAERS Safety Report 16160733 (Version 1)
Quarter: 2019Q2

REPORT INFORMATION
  Report Type: Spontaneous
  Country: GB (occurrence: GB)
  Receive Date: 20190405
  Receipt Date: 20190405
  Transmission Date: 20190711
  Serious: Yes (Hospitalization, Other)
  Sender: FDA-Public Use
  Company Number: PHHY2019GB076081

PATIENT
  Age: 68 Year
  Sex: Male

DRUGS (2)
  1. APIXABAN [Suspect]
     Active Substance: APIXABAN
     Indication: ATRIAL FIBRILLATION
     Route: 048
  2. CODEINE PHOSPHATE [Suspect]
     Active Substance: CODEINE PHOSPHATE
     Indication: ANALGESIC THERAPY
     Route: 065

REACTIONS (6)
  - Spinal subdural haematoma [Recovering/Resolving]
  - Mobility decreased [Not Recovered/Not Resolved]
  - Urinary retention [Recovering/Resolving]
  - Ataxia [Unknown]
  - Constipation [Recovered/Resolved]
  - Subarachnoid haemorrhage [Unknown]
